FAERS Safety Report 14973478 (Version 1)
Quarter: 2018Q2

REPORT INFORMATION
  Report Type: Spontaneous
  Country: GB (occurrence: GB)
  Receive Date: 20180605
  Receipt Date: 20180605
  Transmission Date: 20180711
  Serious: Yes (Other)
  Sender: FDA-Public Use
  Company Number: GB-PFIZER INC-2018223940

PATIENT
  Age: 35 Year
  Sex: Male

DRUGS (1)
  1. NORINYL (MESTRANOL\NORETHINDRONE) [Suspect]
     Active Substance: MESTRANOL\NORETHINDRONE
     Indication: TRANSGENDER HORMONAL THERAPY

REACTIONS (10)
  - Scleroderma renal crisis [Unknown]
  - Product use in unapproved indication [Unknown]
  - Dialysis [None]
  - Gastrooesophageal reflux disease [Unknown]
  - Systemic scleroderma [Unknown]
  - Product use issue [Unknown]
  - Raynaud^s phenomenon [Unknown]
  - Telangiectasia [Unknown]
  - Skin ulcer [Unknown]
  - Pulmonary arterial hypertension [Unknown]
